FAERS Safety Report 9835482 (Version 1)
Quarter: 2014Q1

REPORT INFORMATION
  Report Type: Spontaneous
  Country: US (occurrence: US)
  Receive Date: 20140122
  Receipt Date: 20140122
  Transmission Date: 20141002
  Serious: No
  Sender: FDA-Public Use
  Company Number: US-BRISTOL-MYERS SQUIBB COMPANY-19680552

PATIENT
  Age: 86 Year
  Sex: Female

DRUGS (6)
  1. ELIQUIS [Suspect]
  2. LIPITOR [Concomitant]
  3. COREG [Concomitant]
  4. ZESTRIL [Concomitant]
  5. HYDROCHLOROTHIAZIDE [Concomitant]
  6. AMIODARONE [Concomitant]

REACTIONS (3)
  - Drug administration error [Unknown]
  - Hypoaesthesia [Unknown]
  - Paraesthesia [Unknown]
